FAERS Safety Report 5313136-8 (Version None)
Quarter: 2007Q1

REPORT INFORMATION
  Report Type: 
  Country: None (occurrence: None)
  Receive Date: 20070201
  Receipt Date: 20061114
  Transmission Date: 20070707
  Serious: No
  Sender: FDA-Public Use
  Company Number: VNL_0294_2006

PATIENT
  Age: 61 Year
  Sex: Male
  Weight: 77.5651 kg

DRUGS (4)
  1. APOKYN [Suspect]
     Indication: PARKINSON'S DISEASE
     Dosage: 0.2 ML PRN SC
     Route: 058
     Dates: start: 20060901, end: 20060101
  2. APOKYN [Suspect]
     Indication: PARKINSON'S DISEASE
     Dosage: 0.3 ML PRN SC
     Route: 058
     Dates: start: 20060101
  3. SINEMET [Concomitant]
  4. REQUIP [Concomitant]

REACTIONS (3)
  - DRUG INEFFECTIVE [None]
  - PHARMACEUTICAL PRODUCT COMPLAINT [None]
  - SOMNOLENCE [None]
